FAERS Safety Report 4786063-2 (Version None)
Quarter: 2005Q3

REPORT INFORMATION
  Report Type: 
  Country: None (occurrence: None)
  Receive Date: 20050930
  Receipt Date: 20050921
  Transmission Date: 20060218
  Serious: Yes (Hospitalization)
  Sender: FDA-Public Use
  Company Number: 2005121506

PATIENT
  Age: 72 Year
  Sex: Female
  Weight: 58 kg

DRUGS (5)
  1. MEDROL [Suspect]
     Indication: POLYMYALGIA RHEUMATICA
     Dosage: 8 MG (1 IN 1 D), ORAL
     Route: 048
     Dates: end: 20050507
  2. TRAMADOL HCL [Suspect]
     Indication: ILL-DEFINED DISORDER
     Dosage: 200 MG (100 MG, 1 IN 1 D), INTRAVENOUS
     Route: 042
     Dates: start: 20050501, end: 20050502
  3. OMEPRAZOLE [Concomitant]
  4. FUROSEMIDE [Concomitant]
  5. LEVOTHYROXINE SODIUM [Concomitant]

REACTIONS (3)
  - ABDOMINAL PAIN UPPER [None]
  - CONFUSIONAL STATE [None]
  - DELIRIUM [None]
